FAERS Safety Report 5115184-X (Version None)
Quarter: 2006Q3

REPORT INFORMATION
  Report Type: 
  Country: None (occurrence: None)
  Receive Date: 20060925
  Receipt Date: 20060925
  Transmission Date: 20061208
  Serious: Yes (Life-Threatening)
  Sender: FDA-Public Use
  Company Number: None

PATIENT
  Age: 64 Year
  Sex: Female
  Weight: 70.4 kg

DRUGS (7)
  1. AVASTIN [Suspect]
     Indication: PANCREATIC CARCINOMA METASTATIC
     Dosage: 330MG   6/21, 7/6, 7/18, 8/1    IV
     Route: 042
     Dates: start: 20060621
  2. AVASTIN [Suspect]
     Indication: PANCREATIC CARCINOMA METASTATIC
     Dosage: 330MG   6/21, 7/6, 7/18, 8/1    IV
     Route: 042
     Dates: start: 20060706
  3. AVASTIN [Suspect]
     Indication: PANCREATIC CARCINOMA METASTATIC
     Dosage: 330MG   6/21, 7/6, 7/18, 8/1    IV
     Route: 042
     Dates: start: 20060718
  4. AVASTIN [Suspect]
     Indication: PANCREATIC CARCINOMA METASTATIC
     Dosage: 330MG   6/21, 7/6, 7/18, 8/1    IV
     Route: 042
     Dates: start: 20060801
  5. LOVENOX [Suspect]
     Indication: DEEP VEIN THROMBOSIS
     Dosage: 100MG   QD   SQ
     Route: 058
     Dates: start: 20060719, end: 20060803
  6. LOVENOX [Suspect]
     Indication: NEOPLASM MALIGNANT
     Dosage: 100MG   QD   SQ
     Route: 058
     Dates: start: 20060719, end: 20060803
  7. LOVENOX [Suspect]
     Indication: PULMONARY EMBOLISM
     Dosage: 100MG   QD   SQ
     Route: 058
     Dates: start: 20060719, end: 20060803

REACTIONS (9)
  - CEREBRAL HAEMATOMA [None]
  - DEEP VEIN THROMBOSIS [None]
  - DIVERTICULITIS [None]
  - GASTRIC VARICES [None]
  - HAEMOGLOBIN DECREASED [None]
  - HAEMORRHAGE INTRACRANIAL [None]
  - PULMONARY EMBOLISM [None]
  - SPLENIC VEIN THROMBOSIS [None]
  - UPPER GASTROINTESTINAL HAEMORRHAGE [None]
